FAERS Safety Report 23981558 (Version 1)
Quarter: 2024Q2

REPORT INFORMATION
  Report Type: Spontaneous
  Country: US (occurrence: None)
  Receive Date: 20240615
  Receipt Date: 20240615
  Transmission Date: 20240716
  Serious: Yes (Life-Threatening, Hospitalization, Disabling, Other)
  Sender: FDA-Public Use
  Company Number: None

PATIENT
  Age: 32 Year
  Sex: Female
  Weight: 85.5 kg

DRUGS (16)
  1. BRIXADI [Suspect]
     Active Substance: BUPRENORPHINE
     Indication: Drug dependence
     Dosage: MONTHLY INTRAMUSCULAR
     Route: 030
     Dates: start: 20240610
  2. GABAPENTIN [Concomitant]
     Active Substance: GABAPENTIN
  3. PROZAC [Concomitant]
     Active Substance: FLUOXETINE HYDROCHLORIDE
  4. ADDERALL [Concomitant]
     Active Substance: AMPHETAMINE ASPARTATE\AMPHETAMINE SULFATE\DEXTROAMPHETAMINE SACCHARATE\DEXTROAMPHETAMINE SULFATE
  5. XANAX [Concomitant]
     Active Substance: ALPRAZOLAM
  6. ALLEGRA [Concomitant]
     Active Substance: FEXOFENADINE HYDROCHLORIDE
  7. OXYGEN [Concomitant]
     Active Substance: OXYGEN
  8. BENZONATATE [Concomitant]
     Active Substance: BENZONATATE
  9. DRONABINOL [Concomitant]
     Active Substance: DRONABINOL
  10. ACETAMINOPHEN [Concomitant]
     Active Substance: ACETAMINOPHEN
  11. IBUPROFEN [Concomitant]
     Active Substance: IBUPROFEN
  12. EPHEDRINE SULFATE\GUAIFENESIN [Concomitant]
     Active Substance: EPHEDRINE SULFATE\GUAIFENESIN
  13. sinus cold and flu medicine [Concomitant]
  14. COUGH DROP [Concomitant]
     Active Substance: MENTHOL
  15. vix [Concomitant]
  16. NICOTINE [Concomitant]
     Active Substance: NICOTINE

REACTIONS (8)
  - Illness [None]
  - Feeling cold [None]
  - Lethargy [None]
  - Apathy [None]
  - Rhinorrhoea [None]
  - Rash [None]
  - Injection site rash [None]
  - Pneumonia [None]

NARRATIVE: CASE EVENT DATE: 20240610
